FAERS Safety Report 15327567 (Version 1)
Quarter: 2018Q3

REPORT INFORMATION
  Report Type: Spontaneous
  Country: GR (occurrence: GR)
  Receive Date: 20180828
  Receipt Date: 20180828
  Transmission Date: 20181010
  Serious: Yes (Hospitalization, Other)
  Sender: FDA-Public Use
  Company Number: GR-009507513-1808GRC011200

PATIENT
  Age: 69 Year
  Sex: Female

DRUGS (5)
  1. COMPLAVIN [Concomitant]
     Active Substance: ASPIRIN\CLOPIDOGREL BISULFATE
  2. BLOOD THINNER (UNSPECIFIED) [Concomitant]
     Active Substance: UNSPECIFIED INGREDIENT
  3. CRESTOR [Concomitant]
     Active Substance: ROSUVASTATIN CALCIUM
  4. JANUVIA [Suspect]
     Active Substance: SITAGLIPTIN PHOSPHATE
     Indication: DIABETES MELLITUS
     Dosage: 100 MG (1 TABLET) DAILY
     Route: 048
     Dates: start: 201806
  5. CIPROFLOXACIN LACTATE [Concomitant]
     Active Substance: CIPROFLOXACIN LACTATE
     Indication: BREATH SOUNDS ABNORMAL

REACTIONS (3)
  - Blood glucose abnormal [Unknown]
  - Accidental overdose [Unknown]
  - Angioplasty [Unknown]

NARRATIVE: CASE EVENT DATE: 2018
